FAERS Safety Report 4289295-5 (Version None)
Quarter: 2004Q1

REPORT INFORMATION
  Report Type: 
  Country: None (occurrence: None)
  Receive Date: 20040203
  Receipt Date: 19990312
  Transmission Date: 20041129
  Serious: Yes (Hospitalization)
  Sender: FDA-Public Use
  Company Number: 1999-030

PATIENT
  Age: 30 Year
  Sex: Female

DRUGS (1)
  1. DORYX [Suspect]
     Indication: SINUSITIS
     Dosage: 100 MG BID ORAL
     Route: 048
     Dates: start: 19981211, end: 19981219

REACTIONS (4)
  - DYSPEPSIA [None]
  - DYSPHAGIA [None]
  - OESOPHAGEAL ULCER [None]
  - OESOPHAGITIS [None]
